FAERS Safety Report 14174755 (Version 1)
Quarter: 2017Q4

REPORT INFORMATION
  Report Type: Spontaneous
  Country: ES (occurrence: ES)
  Receive Date: 20171109
  Receipt Date: 20171109
  Transmission Date: 20180321
  Serious: Yes (Other)
  Sender: FDA-Public Use
  Company Number: ES-PFIZER INC-2017479084

PATIENT
  Age: 55 Year
  Sex: Female
  Weight: 65 kg

DRUGS (1)
  1. VANCOMICINA PFIZER [Suspect]
     Active Substance: VANCOMYCIN HYDROCHLORIDE
     Indication: ARTHRITIS INFECTIVE
     Dosage: UNK
     Route: 042
     Dates: start: 20170722, end: 20170802

REACTIONS (1)
  - Pancytopenia [Recovered/Resolved]

NARRATIVE: CASE EVENT DATE: 20170729
